FAERS Safety Report 5727064-7 (Version None)
Quarter: 2008Q2

REPORT INFORMATION
  Report Type: 
  Country: None (occurrence: None)
  Receive Date: 20080505
  Receipt Date: 20080423
  Transmission Date: 20081010
  Serious: Yes (Death)
  Sender: FDA-Public Use
  Company Number: US-ELI_LILLY_AND_COMPANY-US200804005897

PATIENT
  Sex: Male

DRUGS (2)
  1. ZYPREXA [Suspect]
     Indication: SCHIZOPHRENIA
     Dosage: 15 MG, UNK
     Dates: start: 20050101
  2. FLUOXETINE [Concomitant]

REACTIONS (5)
  - AFFECT LABILITY [None]
  - CONVULSION [None]
  - DEPRESSION [None]
  - FEELING ABNORMAL [None]
  - GAIT DISTURBANCE [None]
